FAERS Safety Report 21455545 (Version 12)
Quarter: 2023Q1

REPORT INFORMATION
  Report Type: Spontaneous
  Country: CA (occurrence: CA)
  Receive Date: 20221014
  Receipt Date: 20230315
  Transmission Date: 20230417
  Serious: Yes (Other)
  Sender: FDA-Public Use
  Company Number: CA-CELLTRION INC.-2022CA015792

PATIENT

DRUGS (8)
  1. INFLECTRA [Suspect]
     Active Substance: INFLIXIMAB-DYYB
     Indication: Crohn^s disease
     Dosage: 5 MG/KG, (WEEK 0,2,6 THEN Q 8 WEEKS)
     Route: 042
     Dates: start: 20220823
  2. INFLECTRA [Suspect]
     Active Substance: INFLIXIMAB-DYYB
     Dosage: 5 MG/KG, (WEEK 0,2,6 THEN Q 8 WEEKS)
     Route: 042
     Dates: start: 20220907
  3. INFLECTRA [Suspect]
     Active Substance: INFLIXIMAB-DYYB
     Dosage: 5 MG/KG, (WEEK 0,2,6 THEN Q 8 WEEKS)
     Route: 042
     Dates: start: 20221003
  4. INFLECTRA [Suspect]
     Active Substance: INFLIXIMAB-DYYB
     Dosage: 5 MG/KG, (WEEK 0,2,6 THEN Q 8 WEEKS)
     Route: 042
     Dates: start: 20221003
  5. INFLECTRA [Suspect]
     Active Substance: INFLIXIMAB-DYYB
     Dosage: 5 MG/KG, (WEEK 0,2,6 THEN Q 8 WEEKS)
     Route: 042
     Dates: start: 20221222
  6. INFLECTRA [Suspect]
     Active Substance: INFLIXIMAB-DYYB
     Dosage: 680 MG ,(WEEK 0,2,6 THEN Q 8 WEEKS)AFTER 10 WEEKS
     Route: 042
     Dates: start: 20230306
  7. METHOTREXATE SODIUM [Concomitant]
     Active Substance: METHOTREXATE SODIUM
     Dosage: 15 MG
     Route: 065
  8. INFLUENZA VIRUS VACCINE [Concomitant]
     Active Substance: INFLUENZA VIRUS VACCINE
     Dosage: UNK, SINGLE

REACTIONS (21)
  - Haemorrhage [Unknown]
  - Uterine polyp [Unknown]
  - Uterine leiomyoma [Recovered/Resolved]
  - Ovarian mass [Unknown]
  - Vaginal discharge [Not Recovered/Not Resolved]
  - Flatulence [Not Recovered/Not Resolved]
  - Stress [Unknown]
  - Uterine mass [Not Recovered/Not Resolved]
  - Constipation [Not Recovered/Not Resolved]
  - Swelling [Not Recovered/Not Resolved]
  - COVID-19 [Unknown]
  - Depression [Unknown]
  - Productive cough [Recovered/Resolved]
  - Cough [Not Recovered/Not Resolved]
  - Asthma [Unknown]
  - Polyuria [Unknown]
  - Haemorrhoids [Unknown]
  - Haemorrhoidal haemorrhage [Unknown]
  - Urinary tract infection [Recovered/Resolved]
  - Genitourinary symptom [Unknown]
  - Urine analysis abnormal [Unknown]

NARRATIVE: CASE EVENT DATE: 20220101
